FAERS Safety Report 17316158 (Version 2)
Quarter: 2020Q1

REPORT INFORMATION
  Report Type: Spontaneous
  Country: FR (occurrence: FR)
  Receive Date: 20200124
  Receipt Date: 20200129
  Transmission Date: 20200409
  Serious: Yes (Hospitalization)
  Sender: FDA-Public Use
  Company Number: FR-MYLANLABS-2020M1007028

PATIENT
  Age: 44 Year
  Sex: Male

DRUGS (8)
  1. IBUPROFEN. [Suspect]
     Active Substance: IBUPROFEN
     Indication: PAIN
  2. CIALIS [Concomitant]
     Active Substance: TADALAFIL
     Dosage: UNK (INCONNUE)
     Route: 048
  3. FLUIDABAK [Concomitant]
     Active Substance: POVIDONE
     Dosage: UNK (INCONNUE)
     Route: 047
  4. PARACETAMOL [Concomitant]
     Active Substance: ACETAMINOPHEN
     Indication: PAIN
     Dosage: UNK (INCONNUE)
     Route: 048
  5. PAROXETINE. [Concomitant]
     Active Substance: PAROXETINE
     Dosage: 20 MILLIGRAM, QD
     Route: 048
  6. IBUPROFEN. [Suspect]
     Active Substance: IBUPROFEN
     Indication: ODYNOPHAGIA
     Dosage: 400 MILLIGRAM (INCONNUE)
     Route: 048
  7. DEPAKINE                           /00228502/ [Concomitant]
     Active Substance: VALPROATE SODIUM
     Indication: EPILEPSY
     Dosage: 3 DOSAGE FORM, QD
     Route: 048
  8. CLOPIXOL ACTION PROLONGEE [Concomitant]
     Active Substance: ZUCLOPENTHIXOL ACETATE
     Dosage: 100 MILLIGRAM, Q3W
     Route: 030

REACTIONS (1)
  - Pharyngeal abscess [Recovering/Resolving]

NARRATIVE: CASE EVENT DATE: 20191010
